FAERS Safety Report 5991517-7 (Version None)
Quarter: 2008Q4

REPORT INFORMATION
  Report Type: 
  Country: None (occurrence: None)
  Receive Date: 20081211
  Receipt Date: 20081202
  Transmission Date: 20090506
  Serious: Yes (Other)
  Sender: FDA-Public Use
  Company Number: US-ABBOTT-08P-163-0490639-00

PATIENT
  Sex: Female
  Weight: 52.21 kg

DRUGS (6)
  1. SYNTHROID [Suspect]
     Indication: THYROIDECTOMY
     Dates: start: 20081031, end: 20081105
  2. SYNTHROID [Suspect]
     Dates: start: 20081105, end: 20081121
  3. SYNTHROID [Suspect]
     Dates: start: 20081124
  4. SUCRALFATE [Concomitant]
     Indication: DYSPEPSIA
     Dosage: 1/2 DOSE BEFORE MEALS
     Dates: start: 20081202
  5. SUCRALFATE [Concomitant]
  6. OMEPRAZOLE MAGNESIUM [Concomitant]
     Indication: DRUG USE FOR UNKNOWN INDICATION
     Dosage: 1 PILL DAILY

REACTIONS (15)
  - ABDOMINAL PAIN UPPER [None]
  - ANXIETY [None]
  - BLOOD THYROID STIMULATING HORMONE DECREASED [None]
  - CHEST PAIN [None]
  - DYSPEPSIA [None]
  - DYSPHONIA [None]
  - DYSPNOEA [None]
  - FREQUENT BOWEL MOVEMENTS [None]
  - HEART RATE INCREASED [None]
  - HYPERTENSION [None]
  - INSOMNIA [None]
  - NAUSEA [None]
  - POLLAKIURIA [None]
  - UNEVALUABLE EVENT [None]
  - WEIGHT DECREASED [None]
